FAERS Safety Report 9518678 (Version 3)
Quarter: 2013Q4

REPORT INFORMATION
  Report Type: Report from Study
  Country: BR (occurrence: BR)
  Receive Date: 20130912
  Receipt Date: 20131210
  Transmission Date: 20140711
  Serious: Yes (Life-Threatening, Hospitalization, Other)
  Sender: FDA-Public Use
  Company Number: PHHY2013BR100414

PATIENT
  Age: 17 Year
  Sex: Male
  Weight: 58 kg

DRUGS (14)
  1. EXJADE [Suspect]
     Indication: SICKLE CELL ANAEMIA
     Dosage: 250 MG, TWO TABLETS OF 250 MG
  2. EXJADE [Suspect]
     Dosage: 500 MG, TWO TABLETS OF 500 MG
  3. HYDROXYUREA [Concomitant]
     Dosage: 03 DF, DAILY
  4. AAS [Concomitant]
     Dosage: UNK UKN, UNK
  5. AAS [Concomitant]
     Dosage: 1 DF, DAILY
     Route: 048
     Dates: start: 201209, end: 201309
  6. ACIFOL//FOLIC ACID [Concomitant]
     Indication: SICKLE CELL ANAEMIA
     Dosage: UNK UKN, UNK
  7. ACIFOL//FOLIC ACID [Concomitant]
     Dosage: 5 MG, DAILY
     Route: 048
  8. ZOLOFT [Concomitant]
     Dosage: UNK UKN, UNK
  9. METASON//METRONIDAZOLE [Concomitant]
     Dosage: NOT FREQUENT
  10. TRAMAL [Concomitant]
     Dosage: NOT FREQUENT
  11. MORPHINE [Concomitant]
     Dosage: NOT FREQUENT
  12. DRAMIN [Concomitant]
     Dosage: UNK UKN, UNK
  13. ALENDRONATE [Concomitant]
     Dosage: UNK UKN, UNK
  14. DESFERAL [Concomitant]
     Dosage: UNK UKN, UNK

REACTIONS (17)
  - Respiratory arrest [Recovering/Resolving]
  - Mental disorder [Recovering/Resolving]
  - Pyrexia [Recovering/Resolving]
  - Blood iron increased [Recovering/Resolving]
  - Infarction [Recovering/Resolving]
  - Pulmonary hypertension [Recovering/Resolving]
  - Cardiac disorder [Unknown]
  - Tachycardia [Recovering/Resolving]
  - Vena cava thrombosis [Recovering/Resolving]
  - Malaise [Unknown]
  - Dyspnoea [Recovering/Resolving]
  - Lethargy [Recovering/Resolving]
  - Fatigue [Recovering/Resolving]
  - Abasia [Recovering/Resolving]
  - Haemoglobin decreased [Recovering/Resolving]
  - Headache [Recovering/Resolving]
  - Vomiting [Recovering/Resolving]
